FAERS Safety Report 6760284-1 (Version None)
Quarter: 2010Q2

REPORT INFORMATION
  Report Type: 
  Country: None (occurrence: None)
  Receive Date: 20100608
  Receipt Date: 20100106
  Transmission Date: 20101027
  Serious: No
  Sender: FDA-Public Use
  Company Number: US-BRISTOL-MYERS SQUIBB COMPANY-14942734

PATIENT

DRUGS (2)
  1. EFAVIRENZ TABS [Suspect]
     Route: 048
  2. TRUVADA [Suspect]
     Route: 065

REACTIONS (6)
  - AGITATION [None]
  - ANXIETY [None]
  - DISORIENTATION [None]
  - FEAR [None]
  - HANGOVER [None]
  - INSOMNIA [None]
